FAERS Safety Report 8225601-4 (Version None)
Quarter: 2012Q1

REPORT INFORMATION
  Report Type: 
  Country: None (occurrence: None)
  Receive Date: 20120321
  Receipt Date: 20120316
  Transmission Date: 20120608
  Serious: Yes (Hospitalization)
  Sender: FDA-Public Use
  Company Number: US-GILEAD-2012-0051760

PATIENT
  Sex: Female

DRUGS (2)
  1. LETAIRIS [Suspect]
     Indication: PULMONARY HYPERTENSION
     Dosage: 5 MG, UNK
     Route: 048
     Dates: start: 20110616
  2. LETAIRIS [Suspect]
     Indication: ANTINUCLEAR ANTIBODY POSITIVE

REACTIONS (2)
  - ABDOMINAL ADHESIONS [None]
  - ABDOMINAL PAIN UPPER [None]
